FAERS Safety Report 6132743-6 (Version None)
Quarter: 2009Q1

REPORT INFORMATION
  Report Type: 
  Country: None (occurrence: None)
  Receive Date: 20090326
  Receipt Date: 20090318
  Transmission Date: 20090719
  Serious: Yes (Other)
  Sender: FDA-Public Use
  Company Number: US-CELGENEUS-163-21880-09010476

PATIENT
  Sex: Male

DRUGS (2)
  1. REVLIMID [Suspect]
     Indication: MULTIPLE MYELOMA
     Route: 048
     Dates: start: 20080421
  2. REVLIMID [Suspect]
     Route: 048
     Dates: start: 20080411, end: 20080401

REACTIONS (8)
  - BACK PAIN [None]
  - CONSTIPATION [None]
  - DEAFNESS [None]
  - DYSPEPSIA [None]
  - FATIGUE [None]
  - INGUINAL HERNIA [None]
  - NAUSEA [None]
  - SOMNOLENCE [None]
